FAERS Safety Report 5281766-8 (Version None)
Quarter: 2007Q1

REPORT INFORMATION
  Report Type: 
  Country: None (occurrence: None)
  Receive Date: 20070330
  Receipt Date: 20070322
  Transmission Date: 20070707
  Serious: Yes (Hospitalization)
  Sender: FDA-Public Use
  Company Number: FR-GLAXOSMITHKLINE-B0463670A

PATIENT
  Age: 74 Year
  Sex: Female

DRUGS (4)
  1. DEROXAT [Suspect]
     Route: 048
     Dates: start: 20010601
  2. IMOVANE [Suspect]
     Indication: SLEEP DISORDER
     Route: 048
     Dates: start: 20010601
  3. XANAX [Suspect]
     Route: 048
     Dates: start: 20010601
  4. HYPERIUM [Suspect]
     Indication: ESSENTIAL HYPERTENSION
     Route: 048
     Dates: start: 20010601

REACTIONS (2)
  - CONDITION AGGRAVATED [None]
  - NEURODERMATITIS [None]
